FAERS Safety Report 5275139-1 (Version None)
Quarter: 2007Q1

REPORT INFORMATION
  Report Type: 
  Country: None (occurrence: None)
  Receive Date: 20070326
  Receipt Date: 20070314
  Transmission Date: 20070707
  Serious: Yes (Other)
  Sender: FDA-Public Use
  Company Number: PHBS2007US04694

PATIENT
  Age: 70 Year
  Sex: Female

DRUGS (6)
  1. ZOLEDRONIC ACID [Suspect]
     Indication: MULTIPLE MYELOMA
  2. ZOCOR [Concomitant]
  3. NEXIUM [Concomitant]
  4. RALOXIFENE HCL [Concomitant]
  5. TOPROL-XL [Concomitant]
  6. NEURONTIN [Concomitant]

REACTIONS (7)
  - BONE DEBRIDEMENT [None]
  - MAXILLOFACIAL OPERATION [None]
  - MOUTH ULCERATION [None]
  - ORAL PAIN [None]
  - OSTEOLYSIS [None]
  - OSTEONECROSIS [None]
  - TOOTH EXTRACTION [None]
